FAERS Safety Report 18435845 (Version 1)
Quarter: 2020Q4

REPORT INFORMATION
  Report Type: Spontaneous
  Country: US (occurrence: US)
  Receive Date: 20201028
  Receipt Date: 20201028
  Transmission Date: 20210114
  Serious: Yes (Disabling, Other)
  Sender: FDA-Public Use
  Company Number: US-MELINTA THERAPEUTICS, INC-US-MLNT-20-00309

PATIENT
  Age: 45 Year
  Sex: Male

DRUGS (1)
  1. ORBACTIV [Suspect]
     Active Substance: ORITAVANCIN
     Indication: CELLULITIS
     Dosage: NOT PROVIDED.
     Route: 041
     Dates: start: 20200921, end: 20200921

REACTIONS (6)
  - Wound drainage [Unknown]
  - Gait inability [Unknown]
  - Impaired healing [Unknown]
  - Impaired self-care [Unknown]
  - Impaired work ability [Unknown]
  - Wound treatment [Unknown]
